FAERS Safety Report 8952773 (Version 2)
Quarter: 2013Q2

REPORT INFORMATION
  Report Type: Spontaneous
  Country: FR (occurrence: FR)
  Receive Date: 20121204
  Receipt Date: 20130509
  Transmission Date: 20140414
  Serious: Yes (Hospitalization)
  Sender: FDA-Public Use
  Company Number: FR-ROCHE-1159709

PATIENT
  Sex: Female
  Weight: 1.19 kg

DRUGS (24)
  1. TAMIFLU [Suspect]
     Indication: PRODUCT USED FOR UNKNOWN INDICATION
     Route: 064
     Dates: start: 20120310, end: 20120316
  2. MIDAZOLAM HYDROCHLORIDE [Suspect]
     Indication: PRODUCT USED FOR UNKNOWN INDICATION
     Route: 065
     Dates: start: 20120304, end: 20120323
  3. CEFTRIAXONE [Suspect]
     Indication: PRODUCT USED FOR UNKNOWN INDICATION
     Route: 065
     Dates: start: 20120304, end: 20120311
  4. SUFENTANIL [Suspect]
     Indication: PRODUCT USED FOR UNKNOWN INDICATION
     Route: 065
     Dates: start: 20120316, end: 20120323
  5. FUMAFER [Suspect]
     Indication: PRODUCT USED FOR UNKNOWN INDICATION
     Route: 065
     Dates: start: 20120304, end: 20120316
  6. ATRACURIUM [Suspect]
     Indication: PRODUCT USED FOR UNKNOWN INDICATION
     Route: 065
     Dates: start: 20120304, end: 201203
  7. LOVENOX [Suspect]
     Indication: PRODUCT USED FOR UNKNOWN INDICATION
     Route: 058
     Dates: start: 20120304, end: 20120426
  8. AMOXICILLINE [Suspect]
     Indication: PRODUCT USED FOR UNKNOWN INDICATION
     Route: 065
     Dates: start: 20120304, end: 20120316
  9. RULID [Suspect]
     Indication: PRODUCT USED FOR UNKNOWN INDICATION
     Route: 065
     Dates: start: 20120310, end: 20120316
  10. TAZOCILLINE [Suspect]
     Indication: HYPERTHERMIA
     Route: 065
     Dates: start: 20120316, end: 20120320
  11. CELESTENE [Suspect]
     Indication: FOETAL GROWTH RESTRICTION
     Route: 065
     Dates: start: 20120316, end: 20120317
  12. CELESTENE [Suspect]
     Route: 065
     Dates: start: 20120424, end: 20120425
  13. KETAMINE [Suspect]
     Indication: PRODUCT USED FOR UNKNOWN INDICATION
     Route: 065
     Dates: start: 20120317, end: 20120320
  14. PERFALGAN [Suspect]
     Indication: PRODUCT USED FOR UNKNOWN INDICATION
     Route: 042
     Dates: start: 20120324, end: 20120325
  15. PROPOFOL [Suspect]
     Indication: PRODUCT USED FOR UNKNOWN INDICATION
     Route: 065
     Dates: start: 20130310, end: 20130316
  16. TRACTOCILE [Suspect]
     Indication: PRODUCT USED FOR UNKNOWN INDICATION
     Route: 065
     Dates: start: 20120324, end: 20120326
  17. ZOPHREN [Suspect]
     Indication: NAUSEA
     Route: 042
     Dates: start: 20120321, end: 20120324
  18. INEXIUM [Suspect]
     Indication: PRODUCT USED FOR UNKNOWN INDICATION
     Route: 065
     Dates: start: 20120319, end: 20120325
  19. KABIVEN [Suspect]
     Indication: PRODUCT USED FOR UNKNOWN INDICATION
     Route: 065
     Dates: start: 20120304, end: 20120316
  20. CLINOMEL [Suspect]
     Indication: PRODUCT USED FOR UNKNOWN INDICATION
     Route: 065
  21. EMLA [Concomitant]
     Indication: PRODUCT USED FOR UNKNOWN INDICATION
     Route: 065
     Dates: start: 20120424
  22. VANCOMYCIN [Concomitant]
  23. AMIKLIN [Concomitant]
  24. TAGAMET [Concomitant]
     Indication: PRODUCT USED FOR UNKNOWN INDICATION
     Route: 065
     Dates: start: 20120426

REACTIONS (6)
  - Foetal growth restriction [Recovering/Resolving]
  - Apnoea neonatal [Recovered/Resolved]
  - Feeding disorder neonatal [Recovered/Resolved]
  - Device related sepsis [Recovered/Resolved]
  - Cerebral haemorrhage [Recovered/Resolved]
  - Maternal exposure timing unspecified [Unknown]
